FAERS Safety Report 7064232-9 (Version None)
Quarter: 2010Q4

REPORT INFORMATION
  Report Type: 
  Country: None (occurrence: None)
  Receive Date: 20101027
  Receipt Date: 20101013
  Transmission Date: 20110411
  Serious: Yes (Hospitalization)
  Sender: FDA-Public Use
  Company Number: GB-RANBAXY-2010RR-38895

PATIENT
  Sex: Male
  Weight: 100 kg

DRUGS (4)
  1. SIMVASTATIN [Suspect]
     Indication: BLOOD CHOLESTEROL INCREASED
     Dosage: 40 MG, UNK
  2. ATENOLOL [Concomitant]
     Dosage: 100 MG, UNK
  3. FELODIPINE [Concomitant]
     Dosage: 10 MG, UNK
  4. BENDROFLUMETHIAZIDE 2.5 MG [Concomitant]
     Dosage: 2.5 MG, UNK

REACTIONS (2)
  - BLADDER PAIN [None]
  - RENAL PAIN [None]
